FAERS Safety Report 25841285 (Version 1)
Quarter: 2025Q3

REPORT INFORMATION
  Report Type: Spontaneous
  Country: EU (occurrence: EU)
  Receive Date: 20250924
  Receipt Date: 20250924
  Transmission Date: 20251021
  Serious: Yes (Other)
  Sender: PFIZER
  Company Number: None

PATIENT
  Age: 54 Year
  Sex: Male
  Weight: 66 kg

DRUGS (19)
  1. MYLOTARG [Suspect]
     Active Substance: GEMTUZUMAB OZOGAMICIN
     Indication: Acute myeloid leukaemia
     Route: 042
     Dates: start: 20250616, end: 20250616
  2. METOCLOPRAMIDE [Suspect]
     Active Substance: METOCLOPRAMIDE
     Indication: Nausea
     Dosage: 30 MG, 1X/DAY
     Route: 042
     Dates: start: 20250613, end: 20250626
  3. CERUBIDINE [Suspect]
     Active Substance: DAUNORUBICIN HYDROCHLORIDE
     Indication: Acute myeloid leukaemia
     Route: 042
     Dates: start: 20250613, end: 20250615
  4. PIPERACILLIN AND TAZOBACTAM [Suspect]
     Active Substance: PIPERACILLIN SODIUM\TAZOBACTAM SODIUM
     Indication: Bacteraemia
     Dosage: 4 G, 1X/DAY
     Route: 042
     Dates: start: 20250615, end: 20250625
  5. VANCOMYCIN [Suspect]
     Active Substance: VANCOMYCIN
     Indication: Bacteraemia
     Dosage: 2.5 G, 1X/DAY
     Route: 042
     Dates: start: 20250615, end: 20250625
  6. TRANXENE [Suspect]
     Active Substance: CLORAZEPATE DIPOTASSIUM
     Indication: Anxiety
     Route: 048
     Dates: start: 20250616, end: 20250624
  7. POSACONAZOLE [Suspect]
     Active Substance: POSACONAZOLE
     Indication: Infection prophylaxis
     Dosage: 300 MG, 1X/DAY
     Route: 048
     Dates: start: 20250619, end: 20250625
  8. IOBITRIDOL [Suspect]
     Active Substance: IOBITRIDOL
     Indication: Computerised tomogram
     Route: 042
     Dates: start: 20250615, end: 20250615
  9. ONDANSETRON [Concomitant]
     Active Substance: ONDANSETRON
     Dates: start: 20250607
  10. ONDANSETRON [Concomitant]
     Active Substance: ONDANSETRON
     Dates: start: 20250613, end: 20250620
  11. AUGMENTIN [Concomitant]
     Active Substance: AMOXICILLIN\CLAVULANATE POTASSIUM
     Dates: start: 20250607, end: 20250612
  12. LEVOFLOXACIN [Concomitant]
     Active Substance: LEVOFLOXACIN
     Dates: start: 20250608, end: 20250610
  13. PERINDOPRIL ERBUMINE [Concomitant]
     Active Substance: PERINDOPRIL ERBUMINE
     Dates: start: 20250610
  14. METOCLOPRAMIDE [Concomitant]
     Active Substance: METOCLOPRAMIDE
  15. CYTARABINE [Concomitant]
     Active Substance: CYTARABINE
     Dates: start: 20250613, end: 20250619
  16. VALACYCLOVIR HYDROCHLORIDE [Concomitant]
     Active Substance: VALACYCLOVIR HYDROCHLORIDE
     Dates: start: 20250617
  17. TRAMADOL [Concomitant]
     Active Substance: TRAMADOL
     Dates: start: 20250615, end: 20250615
  18. TRAMADOL [Concomitant]
     Active Substance: TRAMADOL
     Dates: start: 20250619, end: 20250619
  19. TRAMADOL [Concomitant]
     Active Substance: TRAMADOL
     Dates: start: 20250624, end: 20250624

REACTIONS (6)
  - Cholestasis [Unknown]
  - Rash maculo-papular [Recovered/Resolved]
  - Gamma-glutamyltransferase increased [Recovering/Resolving]
  - Blood alkaline phosphatase increased [Recovering/Resolving]
  - C-reactive protein increased [Recovering/Resolving]
  - Alanine aminotransferase decreased [Unknown]

NARRATIVE: CASE EVENT DATE: 20250619
